FAERS Safety Report 13749481 (Version 2)
Quarter: 2017Q3

REPORT INFORMATION
  Report Type: Spontaneous
  Country: JP (occurrence: JP)
  Receive Date: 20170713
  Receipt Date: 20170719
  Transmission Date: 20171127
  Serious: Yes (Other)
  Sender: FDA-Public Use
  Company Number: PHJP2017JP022331

PATIENT
  Sex: Female

DRUGS (7)
  1. TASIGNA [Suspect]
     Active Substance: NILOTINIB
     Dosage: 200 MG, BID
     Route: 048
     Dates: start: 201609, end: 201701
  2. TASIGNA [Suspect]
     Active Substance: NILOTINIB
     Dosage: 200 MG, BID
     Route: 048
     Dates: start: 201701
  3. MOHRUS [Suspect]
     Active Substance: KETOPROFEN
     Indication: MYALGIA
     Dosage: UNK
     Route: 062
  4. TASIGNA [Suspect]
     Active Substance: NILOTINIB
     Dosage: 200 MG, BID
     Route: 048
     Dates: start: 201601, end: 201609
  5. TASIGNA [Suspect]
     Active Substance: NILOTINIB
     Dosage: 200 MG, BID
     Route: 048
     Dates: start: 20131017, end: 201601
  6. TASIGNA [Suspect]
     Active Substance: NILOTINIB
     Indication: CHRONIC MYELOID LEUKAEMIA
     Dosage: 400 MG, BID
     Route: 048
     Dates: start: 20130819, end: 20130904
  7. TASIGNA [Suspect]
     Active Substance: NILOTINIB
     Dosage: 200MG (AT 10:00), 400MG (22:00) BID
     Route: 048
     Dates: start: 20130905, end: 20130918

REACTIONS (32)
  - Splenomegaly [Unknown]
  - White blood cell count decreased [Recovered/Resolved]
  - Liver function test increased [Recovered/Resolved]
  - Myalgia [Recovered/Resolved]
  - Drug eruption [Unknown]
  - Thirst [Unknown]
  - Anhidrosis [Recovering/Resolving]
  - Musculoskeletal stiffness [Recovering/Resolving]
  - Eczema [Recovered/Resolved]
  - Dysgeusia [Recovered/Resolved]
  - Low density lipoprotein increased [Unknown]
  - Body temperature decreased [Unknown]
  - Feeling cold [Unknown]
  - Fatigue [Unknown]
  - Hepatic function abnormal [Recovered/Resolved]
  - Malaise [Recovering/Resolving]
  - Pyrexia [Recovered/Resolved]
  - Fall [Recovered/Resolved]
  - Nausea [Recovering/Resolving]
  - Hyperhidrosis [Unknown]
  - Pollakiuria [Unknown]
  - Asthenia [Unknown]
  - Discomfort [Unknown]
  - Insomnia [Unknown]
  - Vomiting [Recovered/Resolved]
  - Pruritus [Unknown]
  - Alopecia [Recovered/Resolved]
  - Hot flush [Not Recovered/Not Resolved]
  - Xanthelasma [Unknown]
  - Skin hypopigmentation [Unknown]
  - Pain in extremity [Unknown]
  - Therapeutic response unexpected [Unknown]

NARRATIVE: CASE EVENT DATE: 20130820
